FAERS Safety Report 6526985-5 (Version None)
Quarter: 2010Q1

REPORT INFORMATION
  Report Type: 
  Country: None (occurrence: None)
  Receive Date: 20100105
  Receipt Date: 20091223
  Transmission Date: 20100710
  Serious: Yes (Hospitalization)
  Sender: FDA-Public Use
  Company Number: TW-PFIZER INC-2009301693

PATIENT
  Age: 55 Year
  Sex: Female
  Weight: 64 kg

DRUGS (2)
  1. EPIRUBICIN HYDROCHLORIDE [Suspect]
     Indication: BREAST CANCER
     Dosage: 45 MG/M2, ON DAY 1 AND ON DAY 8 EVERY 21 DAYS
     Route: 042
     Dates: start: 20090915, end: 20090922
  2. DOCETAXEL [Suspect]
     Indication: BREAST CANCER
     Dosage: 35 MG/M2,  ON DAY 1 AND ON DAY 8 EVERY 21 DAYS
     Route: 042
     Dates: start: 20090915, end: 20090922

REACTIONS (2)
  - INTERSTITIAL LUNG DISEASE [None]
  - PYREXIA [None]
